FAERS Safety Report 18496749 (Version 1)
Quarter: 2020Q4

REPORT INFORMATION
  Report Type: Spontaneous
  Country: US (occurrence: US)
  Receive Date: 20201112
  Receipt Date: 20201112
  Transmission Date: 20210114
  Serious: Yes (Death)
  Sender: FDA-Public Use
  Company Number: None

PATIENT
  Sex: Male

DRUGS (1)
  1. MYCOPPHENOLATE 500MG [Suspect]
     Active Substance: MYCOPHENOLATE MOFETIL
     Indication: DERMATOLOGIC EXAMINATION ABNORMAL

REACTIONS (1)
  - Death [None]
